FAERS Safety Report 10053315 (Version 1)
Quarter: 2014Q2

REPORT INFORMATION
  Report Type: Spontaneous
  Country: GB (occurrence: GB)
  Receive Date: 20140402
  Receipt Date: 20140402
  Transmission Date: 20141212
  Serious: Yes (Other)
  Sender: FDA-Public Use
  Company Number: GB-WATSON-2014-05991

PATIENT
  Age: 27 Year
  Sex: Male
  Weight: 64 kg

DRUGS (2)
  1. AMOXICILLIN (UNKNOWN) [Suspect]
     Indication: HELICOBACTER INFECTION
     Dosage: 1000 MG, BID
     Route: 048
     Dates: start: 20140220, end: 20140227
  2. METRONIDAZOLE (UNKNOWN) [Suspect]
     Indication: HELICOBACTER INFECTION
     Dosage: 400 MG, TID
     Route: 048
     Dates: start: 20140220, end: 20140227

REACTIONS (2)
  - Oral candidiasis [Not Recovered/Not Resolved]
  - Pruritus [Unknown]
